FAERS Safety Report 5589660-X (Version None)
Quarter: 2008Q1

REPORT INFORMATION
  Report Type: 
  Country: None (occurrence: None)
  Receive Date: 20080114
  Receipt Date: 20080103
  Transmission Date: 20080703
  Serious: Yes (Other)
  Sender: FDA-Public Use
  Company Number: B0361659A

PATIENT
  Age: 22 Year
  Sex: Female

DRUGS (7)
  1. PAROXETINE HYDROCHLORIDE [Suspect]
     Indication: DEPRESSION
     Route: 065
     Dates: start: 20020228, end: 20040611
  2. PROZAC [Concomitant]
     Dates: start: 19991102
  3. CIPRAMIL [Concomitant]
     Dates: start: 20021021
  4. PROTHIADEN [Concomitant]
     Dates: start: 20030430
  5. DIAZEPAM [Concomitant]
     Dates: start: 20030430
  6. ZISPIN [Concomitant]
     Dates: start: 20031010
  7. EFFEXOR [Concomitant]
     Dates: start: 20020906

REACTIONS (20)
  - AGGRESSION [None]
  - AGORAPHOBIA [None]
  - ANGER [None]
  - ANXIETY [None]
  - DIZZINESS [None]
  - FATIGUE [None]
  - HALLUCINATION [None]
  - HEADACHE [None]
  - HYPERHIDROSIS [None]
  - INTENTIONAL SELF-INJURY [None]
  - MEMORY IMPAIRMENT [None]
  - NAUSEA [None]
  - NERVOUSNESS [None]
  - NIGHTMARE [None]
  - PANIC ATTACK [None]
  - PARAESTHESIA [None]
  - PARANOIA [None]
  - SUICIDAL IDEATION [None]
  - TREMOR [None]
  - WITHDRAWAL SYNDROME [None]
